FAERS Safety Report 18965893 (Version 1)
Quarter: 2021Q1

REPORT INFORMATION
  Report Type: Spontaneous
  Country: US (occurrence: US)
  Receive Date: 20210303
  Receipt Date: 20210303
  Transmission Date: 20210420
  Serious: Yes (Other)
  Sender: FDA-Public Use
  Company Number: US-GLAXOSMITHKLINE-US2021AMR053966

PATIENT
  Age: 61 Year
  Sex: Female

DRUGS (5)
  1. ARNUITY ELLIPTA [Suspect]
     Active Substance: FLUTICASONE FUROATE
     Indication: PRODUCT USED FOR UNKNOWN INDICATION
     Dosage: UNK
  2. NP THYROID [Suspect]
     Active Substance: LEVOTHYROXINE\LIOTHYRONINE
     Indication: HYPOTHYROIDISM
     Dosage: 1 DF, QD, TABLET
     Route: 048
     Dates: start: 201904
  3. CIPRO [Suspect]
     Active Substance: CIPROFLOXACIN HYDROCHLORIDE
     Indication: PRODUCT USED FOR UNKNOWN INDICATION
     Dosage: UNK
  4. LEVOTHYROXIN [Suspect]
     Active Substance: LEVOTHYROXINE
     Indication: PRODUCT USED FOR UNKNOWN INDICATION
     Dosage: UNK
  5. ALBUTEROL SULFATE. [Suspect]
     Active Substance: ALBUTEROL SULFATE
     Indication: PRODUCT USED FOR UNKNOWN INDICATION
     Dosage: UNK, AS NEEDED

REACTIONS (19)
  - Heart rate decreased [Not Recovered/Not Resolved]
  - Malaise [Not Recovered/Not Resolved]
  - Hypothyroidism [Unknown]
  - Arthralgia [Not Recovered/Not Resolved]
  - Weight increased [Not Recovered/Not Resolved]
  - Weight decreased [Unknown]
  - Nausea [Recovered/Resolved]
  - Tri-iodothyronine decreased [Not Recovered/Not Resolved]
  - Thyroxine decreased [Not Recovered/Not Resolved]
  - Periorbital swelling [Unknown]
  - Drug hypersensitivity [Unknown]
  - Skin swelling [Unknown]
  - Swelling face [Unknown]
  - Poor quality sleep [Not Recovered/Not Resolved]
  - Metabolic disorder [Unknown]
  - Inflammation [Not Recovered/Not Resolved]
  - Therapeutic response changed [Unknown]
  - Plantar fasciitis [Unknown]
  - Reverse tri-iodothyronine increased [Not Recovered/Not Resolved]

NARRATIVE: CASE EVENT DATE: 2016
